FAERS Safety Report 8242424-0 (Version None)
Quarter: 2012Q1

REPORT INFORMATION
  Report Type: 
  Country: None (occurrence: None)
  Receive Date: 20120329
  Receipt Date: 20120321
  Transmission Date: 20120608
  Serious: Yes (Hospitalization)
  Sender: FDA-Public Use
  Company Number: US-US-EMD SERONO, INC.-7000016

PATIENT
  Sex: Female
  Weight: 53 kg

DRUGS (16)
  1. PROTONIX [Concomitant]
     Indication: ABDOMINAL PAIN UPPER
  2. MELATONIN [Concomitant]
     Indication: INSOMNIA
  3. IMITREX [Concomitant]
     Indication: MIGRAINE
  4. MOTRIN [Concomitant]
     Indication: PREMEDICATION
  5. NEURONTIN [Concomitant]
     Indication: PAIN
  6. DARVOCET [Concomitant]
     Indication: PRODUCT USED FOR UNKNOWN INDICATION
  7. CALCIUM WITH VITAMIN D [Concomitant]
     Indication: SUPPLEMENTATION THERAPY
  8. REBIF [Suspect]
     Indication: MULTIPLE SCLEROSIS
     Route: 058
     Dates: start: 20030401
  9. KLONOPIN [Concomitant]
     Indication: INSOMNIA
  10. VITAMIN D [Concomitant]
     Indication: SUPPLEMENTATION THERAPY
  11. IRON [Concomitant]
     Indication: PRODUCT USED FOR UNKNOWN INDICATION
  12. PROMETHEZINE [Concomitant]
     Indication: PRODUCT USED FOR UNKNOWN INDICATION
  13. NAPROXEN (ALEVE) [Concomitant]
     Indication: PREMEDICATION
  14. PROTONIX [Concomitant]
     Indication: GASTROOESOPHAGEAL REFLUX DISEASE
  15. IRON [Concomitant]
  16. OXYCODONE HCL [Concomitant]
     Indication: PAIN

REACTIONS (6)
  - INJECTION SITE PRURITUS [None]
  - UTERINE POLYP [None]
  - INJECTION SITE HAEMATOMA [None]
  - INJECTION SITE ERYTHEMA [None]
  - CONSTIPATION [None]
  - UTERINE LEIOMYOMA [None]
